FAERS Safety Report 13512659 (Version 1)
Quarter: 2017Q2

REPORT INFORMATION
  Report Type: Spontaneous
  Country: SA (occurrence: SA)
  Receive Date: 20170504
  Receipt Date: 20170504
  Transmission Date: 20170830
  Serious: Yes (Other)
  Sender: FDA-Public Use
  Company Number: SA-MYLANLABS-2017M1026892

PATIENT

DRUGS (6)
  1. AMPICILLIN [Suspect]
     Active Substance: AMPICILLIN
     Indication: PRODUCT USED FOR UNKNOWN INDICATION
     Dosage: 2 GM/IV/STAT, FOLLOWED BY 1 GM/IV/Q 6 HOURS FOR 48 HOURS
     Route: 042
  2. ERYTHROMYCIN. [Suspect]
     Active Substance: ERYTHROMYCIN
     Route: 048
  3. DEXAMETHASONE. [Suspect]
     Active Substance: DEXAMETHASONE
     Indication: PRODUCT USED FOR UNKNOWN INDICATION
     Dosage: 2 DOSES
     Route: 030
  4. ERYTHROMYCIN. [Suspect]
     Active Substance: ERYTHROMYCIN
     Indication: PRODUCT USED FOR UNKNOWN INDICATION
     Dosage: FOR 48 HOURS INITIALLY; LATER 500MG/8 HOURS
     Route: 042
  5. AMPICILLIN [Suspect]
     Active Substance: AMPICILLIN
     Dosage: FOR 48 HOURS
     Route: 042
  6. AMOXICILLIN. [Suspect]
     Active Substance: AMOXICILLIN
     Indication: PRODUCT USED FOR UNKNOWN INDICATION
     Route: 048

REACTIONS (3)
  - Premature delivery [Recovered/Resolved]
  - Maternal exposure during pregnancy [Unknown]
  - Oligohydramnios [Unknown]
